FAERS Safety Report 18936581 (Version 1)
Quarter: 2021Q1

REPORT INFORMATION
  Report Type: Spontaneous
  Country: IT (occurrence: IT)
  Receive Date: 20210225
  Receipt Date: 20210225
  Transmission Date: 20210420
  Serious: Yes (Other)
  Sender: FDA-Public Use
  Company Number: IT-ROCHE-2775882

PATIENT
  Age: 45 Year
  Sex: Female

DRUGS (2)
  1. RIVOTRIL [Suspect]
     Active Substance: CLONAZEPAM
     Indication: DEPRESSED MOOD
     Dosage: ON 28/AUG/2020, MOST RECENT DOSE
     Route: 048
     Dates: start: 20200828
  2. RIVOTRIL [Suspect]
     Active Substance: CLONAZEPAM
     Indication: DEPRESSED MOOD
     Dosage: ON 28/AUG/2020, MOST RECENT DOSE
     Route: 048
     Dates: start: 20200828

REACTIONS (4)
  - Drug abuse [Unknown]
  - Coma [Recovering/Resolving]
  - Sopor [Recovering/Resolving]
  - Sensory loss [Recovering/Resolving]

NARRATIVE: CASE EVENT DATE: 20200828
